FAERS Safety Report 13167357 (Version 1)
Quarter: 2017Q1

REPORT INFORMATION
  Report Type: Spontaneous
  Country: US (occurrence: US)
  Receive Date: 20170130
  Receipt Date: 20170130
  Transmission Date: 20170428
  Serious: No
  Sender: FDA-Public Use
  Company Number: None

PATIENT
  Age: 47 Year
  Sex: Female
  Weight: 78.75 kg

DRUGS (7)
  1. LEVOFLOXACIN ORTHO-MCNEIL-JA-NSSEN PHARMACEUTICA [Suspect]
     Active Substance: LEVOFLOXACIN
     Indication: SINUSITIS
     Dosage: ?          QUANTITY:2 TABLET(S);?
     Route: 048
     Dates: start: 20170123, end: 20170124
  2. JUNEL FE 1/20 [Concomitant]
     Active Substance: ETHINYL ESTRADIOL\NORETHINDRONE ACETATE
  3. VITAMINS-D3 [Concomitant]
  4. MULTI [Concomitant]
  5. LAMICTAL [Concomitant]
     Active Substance: LAMOTRIGINE
  6. PLAQUENIL [Concomitant]
     Active Substance: HYDROXYCHLOROQUINE SULFATE
  7. VITAMIN B12 [Concomitant]
     Active Substance: CYANOCOBALAMIN

REACTIONS (13)
  - Muscular weakness [None]
  - Myalgia [None]
  - Rash [None]
  - Hypersensitivity [None]
  - Musculoskeletal stiffness [None]
  - Fatigue [None]
  - Paraesthesia [None]
  - Chest discomfort [None]
  - Impaired work ability [None]
  - Headache [None]
  - Therapy cessation [None]
  - Feeling abnormal [None]
  - Dyspnoea [None]

NARRATIVE: CASE EVENT DATE: 20170124
